FAERS Safety Report 9733724 (Version 2)
Quarter: 2013Q4

REPORT INFORMATION
  Report Type: Spontaneous
  Country: JP (occurrence: JP)
  Receive Date: 20131205
  Receipt Date: 20131205
  Transmission Date: 20140711
  Serious: Yes (Hospitalization)
  Sender: FDA-Public Use
  Company Number: JP-MERCK-1311JPN010166

PATIENT
  Age: 62 Year
  Sex: Male

DRUGS (4)
  1. BONALON [Suspect]
     Indication: OSTEOPOROSIS
     Dosage: 35 MG, QW
     Route: 048
  2. PROGRAF [Suspect]
     Dosage: UNKNOWN
  3. IRBETAN [Suspect]
     Dosage: UNK
  4. ACTEMRA [Suspect]
     Dosage: UNK

REACTIONS (1)
  - Liver disorder [Recovered/Resolved]
